FAERS Safety Report 7537736-X (Version None)
Quarter: 2011Q2

REPORT INFORMATION
  Report Type: 
  Country: None (occurrence: None)
  Receive Date: 20110609
  Receipt Date: 20071030
  Transmission Date: 20111010
  Serious: Yes (Hospitalization, Other)
  Sender: FDA-Public Use
  Company Number: PHBS2007AT11645

PATIENT
  Age: 61 Year
  Sex: Female
  Weight: 72 kg

DRUGS (25)
  1. ENAC [Concomitant]
  2. EBRANTIL [Concomitant]
  3. TIOCTAN [Concomitant]
  4. CERTICAN [Suspect]
     Dosage: 1.5 MG, DAILY
     Route: 048
     Dates: start: 20050614
  5. MYFORTIC [Concomitant]
     Dosage: 1440 MG, DAILY
     Route: 065
     Dates: start: 20050823
  6. TRAZODONE HCL [Concomitant]
  7. RABEPRAZOLE SODIUM [Concomitant]
  8. CERTICAN [Suspect]
     Dosage: 3 MG, DAILY
     Route: 048
     Dates: start: 20050606
  9. MYFORTIC [Concomitant]
     Dosage: 1080 MG, DAILY
     Route: 065
     Dates: start: 20050726
  10. CERTICAN [Suspect]
     Dosage: 0.75 MG, DAILY
     Route: 048
     Dates: start: 20070627
  11. SANDIMMUNE [Suspect]
     Dosage: 75 MG, DAILY
     Route: 065
     Dates: start: 20050518, end: 20050601
  12. MYFORTIC [Concomitant]
     Dosage: 1440 MG, DAILY
     Route: 065
     Dates: start: 20050518, end: 20050621
  13. CERTICAN [Suspect]
     Dosage: 3 MG, DAILY
     Route: 048
     Dates: start: 20050601
  14. MYFORTIC [Concomitant]
     Indication: RENAL TRANSPLANT
     Dosage: 720 MG, DAILY
     Route: 065
     Dates: start: 20041103
  15. CARVEDILOL [Concomitant]
  16. LASIX [Concomitant]
  17. CERTICAN [Suspect]
     Indication: RENAL TRANSPLANT
     Route: 048
     Dates: start: 20050530
  18. SODIUM BICARBONATE [Concomitant]
  19. DIOVAN [Concomitant]
  20. INSULIN [Concomitant]
  21. LESCOL [Concomitant]
  22. ARANESP [Concomitant]
  23. CERTICAN [Suspect]
     Dosage: 2.25 MG, DAILY
     Route: 048
     Dates: start: 20050603
  24. SANDIMMUNE [Suspect]
     Indication: RENAL TRANSPLANT
     Route: 065
     Dates: end: 20050501
  25. PREDNISOLONE [Concomitant]
     Indication: RENAL TRANSPLANT
     Dosage: 5 TO 10 MG DAILY
     Route: 065
     Dates: start: 20050518, end: 20050628

REACTIONS (16)
  - PLATELET COUNT ABNORMAL [None]
  - RENAL IMPAIRMENT [None]
  - BLOOD CREATININE INCREASED [None]
  - BLOOD TRIGLYCERIDES ABNORMAL [None]
  - PHARYNGITIS [None]
  - PROTEINURIA [None]
  - POLYNEUROPATHY IN MALIGNANT DISEASE [None]
  - BLOOD CREATININE ABNORMAL [None]
  - BLOOD CHOLESTEROL ABNORMAL [None]
  - VOMITING [None]
  - CHRONIC ALLOGRAFT NEPHROPATHY [None]
  - DIABETES MELLITUS INADEQUATE CONTROL [None]
  - NEPHROPATHY TOXIC [None]
  - OEDEMA PERIPHERAL [None]
  - HAEMOGLOBIN ABNORMAL [None]
  - URINARY TRACT INFECTION [None]
